FAERS Safety Report 7609673-3 (Version None)
Quarter: 2011Q3

REPORT INFORMATION
  Report Type: 
  Country: None (occurrence: None)
  Receive Date: 20110714
  Receipt Date: 20110708
  Transmission Date: 20111222
  Serious: Yes (Other)
  Sender: FDA-Public Use
  Company Number: BR-ABBOTT-11P-020-0837981-00

PATIENT
  Sex: Female
  Weight: 66 kg

DRUGS (8)
  1. VITAMIN D [Concomitant]
     Indication: PRODUCT USED FOR UNKNOWN INDICATION
     Route: 048
  2. FOLIC ACID [Concomitant]
     Indication: BONE DISORDER
     Dosage: 1 CAPSULE/TABLET PER WEEK
  3. HUMIRA [Suspect]
     Indication: RHEUMATOID ARTHRITIS
     Route: 058
     Dates: start: 20070101
  4. GLICLAZIDE [Concomitant]
     Indication: DIABETES MELLITUS
     Dosage: 3 CAPSULES/TABLETS PER DAY
     Route: 048
  5. ALENDRONATE SODIUM [Concomitant]
     Indication: BONE DISORDER
     Dosage: 1 CAPSULE/TABLET PER WEEK
  6. METHOTREXATE [Concomitant]
     Indication: RHEUMATOID ARTHRITIS
     Dosage: 2 CAPSULES/TABLETS PER DAY
     Route: 048
  7. SIMVASTATIN [Concomitant]
     Indication: BLOOD CHOLESTEROL INCREASED
     Route: 048
  8. AMLODIPINE BESYLATE / BENAZEPRIL HYDROCHLORIDE (PRESS PLUS) [Concomitant]
     Indication: HYPERTENSION
     Route: 048

REACTIONS (2)
  - FOOT DEFORMITY [None]
  - CYST [None]
